FAERS Safety Report 20517544 (Version 1)
Quarter: 2022Q1

REPORT INFORMATION
  Report Type: Spontaneous
  Country: CN (occurrence: None)
  Receive Date: 20220225
  Receipt Date: 20220225
  Transmission Date: 20220423
  Serious: Yes (Other)
  Sender: FDA-Public Use
  Company Number: 2022A077145

PATIENT
  Age: 62 Year
  Sex: Male
  Weight: 55 kg

DRUGS (2)
  1. IMFINZI [Suspect]
     Active Substance: DURVALUMAB
     Indication: Small cell lung cancer extensive stage
     Route: 042
  2. PLENDIL [Concomitant]
     Active Substance: FELODIPINE
     Indication: Hypertension
     Route: 065

REACTIONS (3)
  - Metastases to liver [Unknown]
  - Rash pruritic [Recovered/Resolved]
  - Drug ineffective [Unknown]
